FAERS Safety Report 6426629-7 (Version None)
Quarter: 2009Q4

REPORT INFORMATION
  Report Type: 
  Country: None (occurrence: None)
  Receive Date: 20091104
  Receipt Date: 20091026
  Transmission Date: 20100525
  Serious: Yes (Other)
  Sender: FDA-Public Use
  Company Number: US-ABBOTT-09P-163-0600421-00

PATIENT
  Sex: Female
  Weight: 35.412 kg

DRUGS (8)
  1. HUMIRA [Suspect]
     Indication: CROHN'S DISEASE
     Route: 058
     Dates: start: 20090831
  2. OXYCODONE [Concomitant]
     Indication: PAIN
     Dosage: 5/325MG, AS NEEDED
  3. VITAMIN D [Concomitant]
     Indication: DRUG USE FOR UNKNOWN INDICATION
     Dosage: EVERY TUESDAY AND THURSDAY
  4. VITAMIN B-12 [Concomitant]
     Indication: VITAMIN SUPPLEMENTATION
     Route: 050
  5. ZEGERID [Concomitant]
     Indication: GASTROOESOPHAGEAL REFLUX DISEASE
  6. IMODIUM [Concomitant]
     Indication: DIARRHOEA
  7. INFLUENZA VACCINE [Concomitant]
     Indication: DRUG USE FOR UNKNOWN INDICATION
     Dates: start: 20091001, end: 20091001
  8. PNEUMOCOCCAL VACCINE [Concomitant]
     Indication: DRUG USE FOR UNKNOWN INDICATION
     Dates: start: 20091001, end: 20091001

REACTIONS (8)
  - CATHETER SITE PAIN [None]
  - CHEST PAIN [None]
  - DYSPNOEA [None]
  - INJECTION SITE PAIN [None]
  - NECK PAIN [None]
  - PULMONARY THROMBOSIS [None]
  - THROMBOSIS [None]
  - WHITE BLOOD CELL COUNT INCREASED [None]
